FAERS Safety Report 6716065-8 (Version None)
Quarter: 2010Q2

REPORT INFORMATION
  Report Type: 
  Country: None (occurrence: None)
  Receive Date: 20100507
  Receipt Date: 20100503
  Transmission Date: 20101027
  Serious: Yes (Other)
  Sender: FDA-Public Use
  Company Number: A0857688A

PATIENT
  Age: 59 Year
  Sex: Female

DRUGS (10)
  1. ADVAIR DISKUS 100/50 [Suspect]
     Indication: ASTHMA
     Route: 055
     Dates: start: 20050101
  2. INSULIN [Concomitant]
  3. METFORMIN [Concomitant]
  4. LEVOTHYROXINE SODIUM [Concomitant]
  5. MINOCYCLINE [Concomitant]
  6. LISINOPRIL [Concomitant]
  7. DICYCLOMINE [Concomitant]
  8. FLUOXETINE [Concomitant]
  9. RANITIDINE [Concomitant]
  10. VENTOLIN [Concomitant]

REACTIONS (3)
  - CHOKING [None]
  - COUGH [None]
  - SINUSITIS [None]
